FAERS Safety Report 6747985-6 (Version None)
Quarter: 2010Q2

REPORT INFORMATION
  Report Type: 
  Country: None (occurrence: None)
  Receive Date: 20100528
  Receipt Date: 20100520
  Transmission Date: 20101027
  Serious: Yes (Disabling, Other)
  Sender: FDA-Public Use
  Company Number: US-AMGEN-QUU406297

PATIENT
  Sex: Female
  Weight: 86.3 kg

DRUGS (15)
  1. NPLATE [Suspect]
     Indication: IDIOPATHIC THROMBOCYTOPENIC PURPURA
     Route: 058
     Dates: start: 20091028, end: 20091104
  2. CORTICOSTEROIDS [Concomitant]
     Dates: start: 20090908
  3. IMMU-G [Concomitant]
     Route: 042
     Dates: start: 20090909, end: 20091028
  4. SYNTHROID [Concomitant]
     Route: 048
  5. LISINOPRIL AND HYDROCHLOROTHIAZIDE [Concomitant]
     Route: 048
  6. FOLIC ACID [Concomitant]
     Route: 048
  7. PROTONIX [Concomitant]
     Route: 048
  8. LEVAQUIN [Concomitant]
     Route: 048
     Dates: start: 20091116
  9. PREDNISONE TAB [Concomitant]
     Route: 048
     Dates: start: 20091116
  10. CYTOXAN [Concomitant]
     Dates: start: 20091116
  11. RITUXAN [Concomitant]
     Dates: start: 20090925
  12. CITRACAL PLUS D [Concomitant]
     Route: 048
  13. KLOR-CON [Concomitant]
     Route: 048
  14. FISH OIL [Concomitant]
     Route: 048
  15. PERIDEX [Concomitant]
     Route: 048

REACTIONS (2)
  - DEEP VEIN THROMBOSIS [None]
  - DRUG INEFFECTIVE [None]
